FAERS Safety Report 9055547 (Version 1)
Quarter: 2013Q1

REPORT INFORMATION
  Report Type: Spontaneous
  Country: DE (occurrence: DE)
  Receive Date: 20130206
  Receipt Date: 20130206
  Transmission Date: 20140127
  Serious: Yes (Hospitalization)
  Sender: FDA-Public Use
  Company Number: DE-GLAXOSMITHKLINE-D0078563A

PATIENT
  Sex: Female

DRUGS (2)
  1. VOTRIENT [Suspect]
     Indication: METASTATIC RENAL CELL CARCINOMA
     Dosage: 800MG PER DAY
     Route: 048
  2. MARCUMAR [Concomitant]
     Route: 048

REACTIONS (2)
  - Anaemia [Unknown]
  - Hepatic haemorrhage [Unknown]
